FAERS Safety Report 10054983 (Version 1)
Quarter: 2014Q2

REPORT INFORMATION
  Report Type: Spontaneous
  Country: GB (occurrence: GB)
  Receive Date: 20140402
  Receipt Date: 20140402
  Transmission Date: 20141212
  Serious: Yes (Hospitalization)
  Sender: FDA-Public Use
  Company Number: PHHY2014GB039164

PATIENT
  Sex: Male

DRUGS (9)
  1. STALEVO [Suspect]
     Indication: PARKINSON^S DISEASE
     Dosage: 1 DF (150/37.5/200 MG), DAILY
     Route: 048
  2. STALEVO [Suspect]
     Dosage: 1 DF (100/25/200 MG), DAILY
     Route: 048
  3. STALEVO [Suspect]
     Dosage: 1 DF (75/18.75/200 MG), DAILY
     Route: 048
  4. STALEVO [Suspect]
     Dosage: 1 DF (75/18.75/200 MG TABLET IN THE MORNING, TWO AT LUNCH TIME, ONE AT TEA TIME, AND TWO LATER ON)
     Route: 048
  5. DIAZEPAM [Concomitant]
     Dosage: UNK UKN, UNK
  6. ROPINIROLE [Concomitant]
     Dosage: UNK UKN, UNK
  7. PARACETAMOL [Concomitant]
     Dosage: UNK UKN, UNK
  8. AZILECT [Concomitant]
     Dosage: UNK UKN, UNK
  9. MOVICOL [Concomitant]
     Dosage: UNK UKN, UNK

REACTIONS (2)
  - Drug effect decreased [Not Recovered/Not Resolved]
  - Incorrect dose administered [Not Recovered/Not Resolved]
